FAERS Safety Report 12973508 (Version 3)
Quarter: 2017Q1

REPORT INFORMATION
  Report Type: Spontaneous
  Country: AR (occurrence: AR)
  Receive Date: 20161124
  Receipt Date: 20170125
  Transmission Date: 20170428
  Serious: Yes (Death, Hospitalization, Other)
  Sender: FDA-Public Use
  Company Number: AR-BRISTOL-MYERS SQUIBB COMPANY-BMS-2016-099289

PATIENT
  Age: 69 Year
  Sex: Female

DRUGS (1)
  1. APIXABAN [Suspect]
     Active Substance: APIXABAN
     Indication: PRODUCT USED FOR UNKNOWN INDICATION
     Dosage: 2.5 MG, BID
     Route: 065

REACTIONS (4)
  - Hip surgery [Unknown]
  - Cardiac valve fibroelastoma [Unknown]
  - Cardio-respiratory arrest [Fatal]
  - Device dislocation [Recovering/Resolving]

NARRATIVE: CASE EVENT DATE: 20161115
